FAERS Safety Report 4922123-0 (Version None)
Quarter: 2006Q1

REPORT INFORMATION
  Report Type: 
  Country: None (occurrence: None)
  Receive Date: 20060222
  Receipt Date: 20060222
  Transmission Date: 20060701
  Serious: Yes (Hospitalization)
  Sender: FDA-Public Use
  Company Number: None

PATIENT
  Sex: Male
  Weight: 77.7 kg

DRUGS (3)
  1. KEPPRA [Suspect]
     Indication: MYOCLONUS
     Dosage: KEPPRA 500 MG BID PO
     Route: 048
     Dates: start: 20051102, end: 20051217
  2. CLONAZEPAM [Suspect]
     Indication: ANXIETY
     Dosage: CLONAZEPAM 1.0 MG TID PO
     Route: 048
     Dates: start: 20051102, end: 20051217
  3. AMITRIPTYLINE HCL 100MG TAB [Suspect]
     Indication: DEPRESSION
     Dosage: AMITRIPTYLINE 100 MG
     Dates: start: 20051203

REACTIONS (6)
  - ASTHENIA [None]
  - DIZZINESS [None]
  - HYPERTENSION [None]
  - HYPOVOLAEMIA [None]
  - MYALGIA [None]
  - MYOCLONUS [None]
